FAERS Safety Report 7644238-9 (Version None)
Quarter: 2011Q3

REPORT INFORMATION
  Report Type: 
  Country: None (occurrence: None)
  Receive Date: 20110729
  Receipt Date: 20110718
  Transmission Date: 20111222
  Serious: Yes (Other)
  Sender: FDA-Public Use
  Company Number: PHHY2011IT65392

PATIENT

DRUGS (3)
  1. TASIGNA [Suspect]
     Indication: CHRONIC MYELOID LEUKAEMIA
     Dosage: 800 MG, DAILY
     Route: 048
     Dates: start: 20100913
  2. PANCREX [Concomitant]
     Dosage: 1020 MG, UNK
     Route: 048
     Dates: start: 19960403
  3. INSULIN [Concomitant]
     Dosage: UNK
     Dates: start: 20060101

REACTIONS (9)
  - DECREASED APPETITE [None]
  - HEADACHE [None]
  - ASTHENIA [None]
  - OPHTHALMOPLEGIA [None]
  - TENDON PAIN [None]
  - FACIAL PAIN [None]
  - PARAESTHESIA [None]
  - DRY MOUTH [None]
  - HYPERAESTHESIA [None]
